FAERS Safety Report 6642469-8 (Version None)
Quarter: 2010Q1

REPORT INFORMATION
  Report Type: 
  Country: None (occurrence: None)
  Receive Date: 20100319
  Receipt Date: 20100310
  Transmission Date: 20100710
  Serious: Yes (Other)
  Sender: FDA-Public Use
  Company Number: FR-ROCHE-690394

PATIENT
  Sex: Female
  Weight: 55 kg

DRUGS (9)
  1. TOCILIZUMAB [Suspect]
     Indication: RHEUMATOID ARTHRITIS
     Dosage: FORM REPORTED AS INFUSION. LAST DOSE PRIOR TO SAE 22 DECEMBER 2009. PERMANENTLY DISCONTINUED.
     Route: 042
     Dates: start: 20090929, end: 20100217
  2. INFLIXIMAB [Suspect]
     Indication: RHEUMATOID ARTHRITIS
     Route: 065
     Dates: start: 20010401, end: 20010512
  3. ETANERCEPT [Suspect]
     Indication: RHEUMATOID ARTHRITIS
     Route: 065
     Dates: start: 20010630, end: 20090909
  4. METOJECT [Concomitant]
     Dates: start: 20080911
  5. CORTANCYL [Concomitant]
     Dates: start: 19910101
  6. SPECIAFOLDINE [Concomitant]
     Dates: start: 20091027
  7. PARACETAMOL [Concomitant]
     Dates: start: 20081001
  8. APOVENT [Concomitant]
     Dosage: START DATE REPOTED AS PREVIOUS.
  9. BRICANYL [Concomitant]
     Dosage: START DATE REOPTED AS PREVIOUS.

REACTIONS (1)
  - MALIGNANT MELANOMA [None]
